FAERS Safety Report 21371549 (Version 1)
Quarter: 2022Q3

REPORT INFORMATION
  Report Type: Spontaneous
  Country: MX (occurrence: MX)
  Receive Date: 20220923
  Receipt Date: 20220923
  Transmission Date: 20221027
  Serious: Yes (Other)
  Sender: FDA-Public Use
  Company Number: MX-BAYER-2022A132743

PATIENT
  Age: 33 Year
  Sex: Female

DRUGS (2)
  1. XARELTO [Suspect]
     Active Substance: RIVAROXABAN
     Indication: Angiopathy
     Dosage: 2.5 MG, BID
     Route: 048
     Dates: start: 20220601
  2. ASPIRIN [Concomitant]
     Active Substance: ASPIRIN
     Indication: Angiopathy
     Dosage: 100 MG

REACTIONS (1)
  - Acute haemorrhagic conjunctivitis [Recovered/Resolved]

NARRATIVE: CASE EVENT DATE: 20220801
